FAERS Safety Report 7565608-3 (Version None)
Quarter: 2011Q2

REPORT INFORMATION
  Report Type: 
  Country: None (occurrence: None)
  Receive Date: 20110616
  Receipt Date: 20110606
  Transmission Date: 20111010
  Serious: Yes (Other)
  Sender: FDA-Public Use
  Company Number: 2010S1000996

PATIENT
  Sex: Male

DRUGS (1)
  1. LIVALO [Suspect]
     Indication: BLOOD CHOLESTEROL INCREASED
     Dosage: 2 MG; PO
     Route: 048

REACTIONS (1)
  - DIZZINESS [None]
